FAERS Safety Report 15857767 (Version 1)
Quarter: 2018Q4

REPORT INFORMATION
  Report Type: Spontaneous
  Country: US (occurrence: US)
  Receive Date: 20181228
  Receipt Date: 20181228
  Transmission Date: 20190205
  Serious: No
  Sender: FDA-Public Use
  Company Number: None

PATIENT
  Age: 25 Year
  Sex: Female

DRUGS (1)
  1. GLATIRAMER 20MG PFS INJ (30/BOX) [Suspect]
     Active Substance: GLATIRAMER
     Indication: MULTIPLE SCLEROSIS
     Route: 058
     Dates: start: 201811

REACTIONS (6)
  - Pain [None]
  - Injection site swelling [None]
  - Pruritus [None]
  - Swelling [None]
  - Erythema [None]
  - Mass [None]

NARRATIVE: CASE EVENT DATE: 20181224
